FAERS Safety Report 21679615 (Version 1)
Quarter: 2022Q4

REPORT INFORMATION
  Report Type: Spontaneous
  Country: US (occurrence: US)
  Receive Date: 20221205
  Receipt Date: 20221205
  Transmission Date: 20230112
  Serious: No
  Sender: FDA-Public Use
  Company Number: US-GSK-US2022AMR177670

PATIENT
  Sex: Female

DRUGS (1)
  1. BENLYSTA [Suspect]
     Active Substance: BELIMUMAB
     Indication: Systemic lupus erythematosus
     Dosage: 200 MG, Z (200MG/ML PEN 4/PK) INJECT 1 PEN (200 MG/ML) SUBCUTANEOUSLY ONCE WEEKLY)
     Route: 058

REACTIONS (1)
  - Product dose omission issue [Unknown]
